FAERS Safety Report 13727128 (Version 5)
Quarter: 2017Q4

REPORT INFORMATION
  Report Type: Report from Study
  Country: US (occurrence: BR)
  Receive Date: 20170707
  Receipt Date: 20171020
  Transmission Date: 20180320
  Serious: Yes (Other)
  Sender: FDA-Public Use
  Company Number: US-SUNOVION-2017SUN002980

PATIENT
  Sex: Male
  Weight: 125 kg

DRUGS (4)
  1. INDACATEROL AND GLYCOPYRROLATE [Suspect]
     Active Substance: GLYCOPYRROLATE\INDACATEROL MALEATE
     Dosage: 1 DF (GLYCOPYRRONIUM BROMIDE 50 UG/ INDACATEROL 110 UG), QD
     Route: 055
     Dates: start: 201705
  2. INDACATEROL AND GLYCOPYRROLATE [Suspect]
     Active Substance: GLYCOPYRROLATE\INDACATEROL MALEATE
     Indication: EMPHYSEMA
     Dosage: 1 DF (GLYCOPYRRONIUM BROMIDE 50 UG/ INDACATEROL 110 UG), QD
     Route: 055
     Dates: start: 1997
  3. INDACATEROL AND GLYCOPYRROLATE [Suspect]
     Active Substance: GLYCOPYRROLATE\INDACATEROL MALEATE
     Indication: CHRONIC OBSTRUCTIVE PULMONARY DISEASE
     Dosage: 1 DF (GLYCOPYRRONIUM BROMIDE 50 UG/ INDACATEROL 110 UG), QD
     Route: 055
     Dates: start: 1997
  4. OXIMAX [Concomitant]
     Active Substance: MOMETASONE FUROATE
     Dosage: UNK

REACTIONS (19)
  - Dyspnoea exertional [Unknown]
  - Road traffic accident [Unknown]
  - Emphysema [Unknown]
  - Weight increased [Unknown]
  - Prostatomegaly [Not Recovered/Not Resolved]
  - Dysgeusia [Unknown]
  - Varicose vein ruptured [Unknown]
  - Urine output decreased [Unknown]
  - Post procedural complication [Unknown]
  - Weight decreased [Unknown]
  - Dry throat [Unknown]
  - Cartilage injury [Unknown]
  - Exercise tolerance decreased [Unknown]
  - Pulmonary tuberculoma [Unknown]
  - Pneumonia [Unknown]
  - Viral upper respiratory tract infection [Unknown]
  - Heart rate abnormal [Unknown]
  - Dry mouth [Unknown]
  - Arthralgia [Unknown]
